FAERS Safety Report 8605424-4 (Version None)
Quarter: 2012Q3

REPORT INFORMATION
  Report Type: 
  Country: None (occurrence: None)
  Receive Date: 20120820
  Receipt Date: 20120807
  Transmission Date: 20120928
  Serious: Yes (Hospitalization, Other)
  Sender: FDA-Public Use
  Company Number: US-JNJFOC-20120804250

PATIENT
  Sex: Female
  Weight: 68.04 kg

DRUGS (3)
  1. KLONOPIN [Concomitant]
     Indication: BIPOLAR DISORDER
     Route: 048
  2. LITHIUM CARBONATE [Concomitant]
     Indication: BIPOLAR DISORDER
     Route: 048
  3. INVEGA SUSTENNA [Suspect]
     Indication: SCHIZOAFFECTIVE DISORDER BIPOLAR TYPE
     Route: 030
     Dates: start: 20120701

REACTIONS (26)
  - CRYING [None]
  - GAIT DISTURBANCE [None]
  - LIP SWELLING [None]
  - DYSPHAGIA [None]
  - CONSTIPATION [None]
  - DYSGRAPHIA [None]
  - THIRST [None]
  - PAIN IN EXTREMITY [None]
  - RESTLESS LEGS SYNDROME [None]
  - AKATHISIA [None]
  - SOMNOLENCE [None]
  - SPEECH DISORDER [None]
  - RESTLESSNESS [None]
  - INSOMNIA [None]
  - ASTHENIA [None]
  - DISTURBANCE IN ATTENTION [None]
  - DROOLING [None]
  - BEDRIDDEN [None]
  - TREMOR [None]
  - FATIGUE [None]
  - STUPOR [None]
  - DYSURIA [None]
  - CONFUSIONAL STATE [None]
  - READING DISORDER [None]
  - FEELING ABNORMAL [None]
  - ACTIVITIES OF DAILY LIVING IMPAIRED [None]
